FAERS Safety Report 4343807-1 (Version None)
Quarter: 2004Q2

REPORT INFORMATION
  Report Type: 
  Country: None (occurrence: None)
  Receive Date: 20040419
  Receipt Date: 20040405
  Transmission Date: 20050107
  Serious: Yes (Death)
  Sender: FDA-Public Use
  Company Number: 205723

PATIENT
  Age: 60 Year
  Sex: Male
  Weight: 77.2 kg

DRUGS (7)
  1. RITUXAN [Suspect]
     Indication: MANTLE CELL LYMPHOMA
     Dosage: 1/WEEK , INTRAVENOUS
     Route: 042
  2. RITUXAN [Suspect]
     Indication: MANTLE CELL LYMPHOMA
     Dosage: 250 MG/M2, SINGLE, INTRAVENOUS
     Route: 042
     Dates: start: 20021107, end: 20021107
  3. RITUXAN [Suspect]
     Dosage: 30.9 MCI, INTRAVENOUS
     Route: 042
     Dates: start: 20021114, end: 20021114
  4. RITUXAN [Suspect]
     Dosage: INTRAVENOUS
     Route: 042
     Dates: start: 20031217
  5. IN-111 ZEVALIN(INDIUM-111, IBRITUMOMAB TIUXETAN) [Suspect]
     Indication: MANTLE CELL LYMPHOMA
     Dosage: 5 MCI, SINGLE , INTRAVENOUS
     Route: 042
     Dates: start: 20021107, end: 20021114
  6. Y-90 ZEVALIN(YTTRIUM-90) [Suspect]
     Indication: MANTLE CELL LYMPHOMA
     Dosage: 30.9 MCI, INTRAVENOUS
     Route: 042
     Dates: start: 20021114, end: 20021114
  7. FLUDARABINE PHOSPHATE [Concomitant]

REACTIONS (3)
  - FEBRILE NEUTROPENIA [None]
  - PNEUMONIA [None]
  - TUMOUR LYSIS SYNDROME [None]
